FAERS Safety Report 22242901 (Version 2)
Quarter: 2023Q2

REPORT INFORMATION
  Report Type: Spontaneous
  Country: IN (occurrence: IN)
  Receive Date: 20230424
  Receipt Date: 20230502
  Transmission Date: 20230722
  Serious: Yes (Other)
  Sender: FDA-Public Use
  Company Number: IN-SA-2023SA122861

PATIENT
  Age: 53 Year
  Sex: Male

DRUGS (6)
  1. OXALIPLATIN [Suspect]
     Active Substance: OXALIPLATIN
     Indication: Gallbladder adenocarcinoma
     Dosage: UNK UNK, QCY
     Dates: start: 2021
  2. CAPECITABINE [Suspect]
     Active Substance: CAPECITABINE
     Indication: Gallbladder adenocarcinoma
     Dosage: UNK UNK, QCY
     Dates: start: 202011, end: 202102
  3. TRASTUZUMAB [Concomitant]
     Active Substance: TRASTUZUMAB
     Indication: Gallbladder adenocarcinoma
     Dosage: UNK UNK, QCY,MAINTENANCE
     Dates: start: 202011, end: 202102
  4. IRINOTECAN [Concomitant]
     Active Substance: IRINOTECAN
     Indication: Gallbladder adenocarcinoma
     Dosage: UNK UNK, QCY
     Dates: start: 2021
  5. FLUOROURACIL [Concomitant]
     Active Substance: FLUOROURACIL
     Indication: Gallbladder adenocarcinoma
     Dosage: UNK UNK, QCY
     Dates: start: 2021
  6. LEUCOVORIN [Concomitant]
     Active Substance: LEUCOVORIN
     Indication: Gallbladder adenocarcinoma
     Dosage: UNK UNK, QCY
     Dates: start: 2021

REACTIONS (1)
  - Off label use [Unknown]
